FAERS Safety Report 11264445 (Version 1)
Quarter: 2015Q3

REPORT INFORMATION
  Report Type: Spontaneous
  Country: US (occurrence: US)
  Receive Date: 20150713
  Receipt Date: 20150713
  Transmission Date: 20151125
  Serious: No
  Sender: FDA-Public Use
  Company Number: US-JNJFOC-20150612918

PATIENT
  Sex: Female

DRUGS (1)
  1. LEVOFLOXACIN. [Suspect]
     Active Substance: LEVOFLOXACIN
     Indication: PAIN
     Route: 048
     Dates: start: 201506, end: 201506

REACTIONS (5)
  - Muscle disorder [Unknown]
  - Myalgia [Unknown]
  - Periarthritis [Unknown]
  - Musculoskeletal stiffness [Unknown]
  - Muscle spasms [Unknown]

NARRATIVE: CASE EVENT DATE: 201506
